FAERS Safety Report 11365518 (Version 5)
Quarter: 2016Q1

REPORT INFORMATION
  Report Type: Report from Study
  Country: JP (occurrence: JP)
  Receive Date: 20150811
  Receipt Date: 20160316
  Transmission Date: 20160525
  Serious: Yes (Death, Other)
  Sender: FDA-Public Use
  Company Number: JP-INCYTE CORPORATION-2014IN003407

PATIENT
  Age: 68 Year
  Sex: Female
  Weight: 40 kg

DRUGS (13)
  1. LOXOPROFEN [Suspect]
     Active Substance: LOXOPROFEN
     Indication: PYREXIA
     Dosage: 180 MG, UNK
     Route: 048
     Dates: start: 20150403, end: 20150409
  2. PREDNISOLONE. [Concomitant]
     Active Substance: PREDNISOLONE
     Dosage: 15 MG, UNK
     Route: 065
  3. JAKAFI [Suspect]
     Active Substance: RUXOLITINIB
     Dosage: 10 MG, BID
     Route: 048
     Dates: start: 20141010, end: 20141016
  4. JAKAFI [Suspect]
     Active Substance: RUXOLITINIB
     Dosage: 12.5 MG, BID
     Route: 048
     Dates: start: 20141017, end: 20141023
  5. JAKAFI [Suspect]
     Active Substance: RUXOLITINIB
     Dosage: 10 MG, BID
     Route: 048
     Dates: start: 20141024, end: 20150212
  6. JAKAFI [Suspect]
     Active Substance: RUXOLITINIB
     Dosage: 7.5 MG, BID
     Route: 048
     Dates: start: 20150213, end: 20150326
  7. HYDREA [Concomitant]
     Active Substance: HYDROXYUREA
     Indication: MYELOFIBROSIS
     Dosage: 1000 UNK, UNK
     Route: 048
  8. PREDNISOLONE. [Concomitant]
     Active Substance: PREDNISOLONE
     Indication: MYELOFIBROSIS
     Dosage: 15 MG, UNK
     Route: 048
  9. JAKAFI [Suspect]
     Active Substance: RUXOLITINIB
     Dosage: 7.5 MG, BID
     Route: 048
     Dates: start: 20141003, end: 20141009
  10. PREDNISOLONE. [Concomitant]
     Active Substance: PREDNISOLONE
     Dosage: 15 MG, UNK
     Route: 065
  11. JAKAFI [Suspect]
     Active Substance: RUXOLITINIB
     Indication: MYELOFIBROSIS
     Dosage: 5 MG, BID
     Route: 048
     Dates: start: 20140919, end: 20141002
  12. JAKAFI [Suspect]
     Active Substance: RUXOLITINIB
     Dosage: 10 MG, BID
     Route: 048
     Dates: start: 20150327, end: 20150410
  13. PREDONINE [Concomitant]
     Active Substance: PREDNISOLONE\PREDNISOLONE ACETATE\PREDNISOLONE SODIUM SUCCINATE
     Indication: MYELOFIBROSIS
     Route: 065
     Dates: start: 20150415, end: 20150513

REACTIONS (17)
  - Neutrophil count increased [Unknown]
  - Compression fracture [Recovering/Resolving]
  - Weight increased [Unknown]
  - Myalgia [Recovering/Resolving]
  - Hypoaesthesia [Recovering/Resolving]
  - Altered state of consciousness [Recovered/Resolved]
  - Renal impairment [Recovering/Resolving]
  - Myelofibrosis [Fatal]
  - Back pain [Recovering/Resolving]
  - Platelet count decreased [Not Recovered/Not Resolved]
  - White blood cell count increased [Unknown]
  - Lymphocyte count decreased [Recovering/Resolving]
  - Hypoacusis [Recovered/Resolved]
  - Dehydration [Unknown]
  - Decreased appetite [Recovering/Resolving]
  - Cough [Recovering/Resolving]
  - Hypoglycaemia [Recovered/Resolved]

NARRATIVE: CASE EVENT DATE: 20141003
